FAERS Safety Report 8944663 (Version 1)
Quarter: 2012Q4

REPORT INFORMATION
  Report Type: 
  Country: US (occurrence: US)
  Receive Date: 20121204
  Receipt Date: 20121204
  Transmission Date: 20130627
  Serious: No
  Sender: FDA-Public Use
  Company Number: US-AMGEN-USASP2012064925

PATIENT
  Age: 10 Year
  Sex: Female

DRUGS (2)
  1. ENBREL [Suspect]
     Indication: RHEUMATOID ARTHRITIS
     Dosage: 25mg/1/weekly
     Dates: start: 20120201
  2. METHOTREXATE [Concomitant]
     Dosage: 2.5 mg/6 tabs/weekly

REACTIONS (3)
  - Rheumatoid arthritis [Not Recovered/Not Resolved]
  - Varicella [Not Recovered/Not Resolved]
  - Pharyngitis streptococcal [Recovered/Resolved]
